FAERS Safety Report 8962899 (Version 2)
Quarter: 2013Q1

REPORT INFORMATION
  Report Type: Spontaneous
  Country: US (occurrence: US)
  Receive Date: 20121214
  Receipt Date: 20130305
  Transmission Date: 20140127
  Serious: Yes (Other)
  Sender: FDA-Public Use
  Company Number: US-JNJFOC-20121202856

PATIENT
  Sex: Male
  Weight: 105.24 kg

DRUGS (14)
  1. REMICADE [Suspect]
     Indication: RHEUMATOID ARTHRITIS
     Route: 042
     Dates: start: 20121005
  2. REMICADE [Suspect]
     Indication: RHEUMATOID ARTHRITIS
     Route: 042
     Dates: start: 20120810
  3. REMICADE [Suspect]
     Indication: RHEUMATOID ARTHRITIS
     Route: 042
     Dates: start: 20120615
  4. TRACLEER [Concomitant]
     Route: 065
  5. CRESTOR [Concomitant]
     Route: 065
  6. AVAPRO [Concomitant]
     Route: 065
  7. DILTIAZEM [Concomitant]
     Route: 065
  8. METOPROLOL [Concomitant]
     Route: 065
  9. PRADAXA [Concomitant]
     Route: 065
  10. ALL OTHER THERAPEUTICS [Concomitant]
     Route: 065
  11. PROTONIX [Concomitant]
     Route: 065
  12. ASA [Concomitant]
     Route: 065
  13. LORATADINE [Concomitant]
     Route: 065
  14. UNKNOWN MEDICATION [Concomitant]
     Route: 055

REACTIONS (1)
  - Squamous cell carcinoma [Unknown]
